FAERS Safety Report 18446229 (Version 1)
Quarter: 2020Q4

REPORT INFORMATION
  Report Type: Spontaneous
  Country: US (occurrence: US)
  Receive Date: 20201030
  Receipt Date: 20201030
  Transmission Date: 20210114
  Serious: Yes (Other)
  Sender: FDA-Public Use
  Company Number: US-THERAPEUTICSMD-2020TMD04558

PATIENT
  Age: 84 Year
  Sex: Female
  Weight: 45.35 kg

DRUGS (3)
  1. IMVEXXY [Suspect]
     Active Substance: ESTRADIOL
     Dosage: 10 ?G, 1X/WEEK JUST BEFORE BED
     Route: 067
     Dates: start: 2019
  2. ^A LOT OF MEDICATIONS^ [Concomitant]
  3. ATIVAN [Suspect]
     Active Substance: LORAZEPAM
     Dosage: UNK

REACTIONS (6)
  - Off label use [Not Recovered/Not Resolved]
  - Glioblastoma [Not Recovered/Not Resolved]
  - Confusional state [Unknown]
  - Contraindicated product administered [Not Recovered/Not Resolved]
  - Vomiting [Recovered/Resolved]
  - Incorrect route of product administration [Unknown]

NARRATIVE: CASE EVENT DATE: 2019
